FAERS Safety Report 7541564-9 (Version None)
Quarter: 2011Q2

REPORT INFORMATION
  Report Type: 
  Country: None (occurrence: None)
  Receive Date: 20110613
  Receipt Date: 20110609
  Transmission Date: 20111010
  Serious: No
  Sender: FDA-Public Use
  Company Number: US-PFIZER INC-2011127482

PATIENT
  Sex: Female
  Weight: 62.132 kg

DRUGS (2)
  1. LYRICA [Suspect]
     Indication: MULTIPLE SCLEROSIS
     Dosage: 50 MG, 2X/DAY
     Dates: start: 20101101
  2. COPAXONE [Concomitant]
     Indication: MULTIPLE SCLEROSIS
     Dosage: UNK, DAILY
     Dates: start: 20101201

REACTIONS (1)
  - WEIGHT INCREASED [None]
